FAERS Safety Report 8514526-2 (Version None)
Quarter: 2012Q3

REPORT INFORMATION
  Report Type: 
  Country: None (occurrence: None)
  Receive Date: 20120717
  Receipt Date: 20120712
  Transmission Date: 20120928
  Serious: Yes (Death, Hospitalization)
  Sender: FDA-Public Use
  Company Number: IN-PFIZER INC-2012060450

PATIENT
  Age: 70 Year
  Sex: Male

DRUGS (3)
  1. DELETUS P [Concomitant]
     Dosage: 25 MG, 2X/DAY
     Route: 048
     Dates: start: 20120225
  2. SUTENT [Suspect]
     Indication: GASTROINTESTINAL STROMAL TUMOUR
     Dosage: 50 MG, 1X/DAY
     Route: 048
     Dates: start: 20120220, end: 20120301
  3. SUTENT [Suspect]
     Dosage: 50 MG, 1X/DAY
     Route: 048
     Dates: start: 20120301, end: 20120401

REACTIONS (7)
  - LIVER INJURY [None]
  - DISEASE PROGRESSION [None]
  - DIZZINESS [None]
  - ASTHENIA [None]
  - GASTROINTESTINAL STROMAL TUMOUR [None]
  - DYSPEPSIA [None]
  - VOMITING [None]
